FAERS Safety Report 15624979 (Version 1)
Quarter: 2018Q4

REPORT INFORMATION
  Report Type: Spontaneous
  Country: ES (occurrence: ES)
  Receive Date: 20181116
  Receipt Date: 20181116
  Transmission Date: 20190205
  Serious: Yes (Other)
  Sender: FDA-Public Use
  Company Number: ES-AUROBINDO-AUR-APL-2018-054966

PATIENT
  Age: 73 Year
  Sex: Female

DRUGS (1)
  1. FLECAINIDE [Suspect]
     Active Substance: FLECAINIDE
     Indication: PRODUCT USED FOR UNKNOWN INDICATION
     Dosage: UNK
     Route: 048
     Dates: start: 2018

REACTIONS (5)
  - Visual impairment [Unknown]
  - Decreased appetite [Unknown]
  - Dizziness [Unknown]
  - Dermatitis allergic [Unknown]
  - Tremor [Unknown]

NARRATIVE: CASE EVENT DATE: 2018
